FAERS Safety Report 6131446-1 (Version None)
Quarter: 2009Q1

REPORT INFORMATION
  Report Type: 
  Country: None (occurrence: None)
  Receive Date: 20090325
  Receipt Date: 20080805
  Transmission Date: 20090719
  Serious: Yes (Other)
  Sender: FDA-Public Use
  Company Number: US-BRISTOL-MYERS SQUIBB COMPANY-14264360

PATIENT
  Age: 54 Year
  Sex: Male

DRUGS (4)
  1. ERBITUX [Suspect]
     Indication: METASTATIC SQUAMOUS CELL CARCINOMA
     Dosage: ON 15JUL08 RECHALLENGED TEST DOSE 20MG OF ERBITUX IV 10CC OVER 10 MINUTES
     Route: 042
     Dates: start: 20080711, end: 20080711
  2. BENADRYL [Concomitant]
     Indication: PREMEDICATION
     Dosage: ALSO GIVEN ON 15JUL08
     Dates: start: 20080711, end: 20080711
  3. PEPCID [Concomitant]
     Indication: PREMEDICATION
     Dosage: ALSO GIVEN ON 15JUL08
     Dates: start: 20080711, end: 20080711
  4. STEROIDS [Concomitant]
     Indication: PREMEDICATION
     Dates: start: 20080711, end: 20080711

REACTIONS (3)
  - CHEST DISCOMFORT [None]
  - LABILE BLOOD PRESSURE [None]
  - RASH GENERALISED [None]
